FAERS Safety Report 6409087-8 (Version None)
Quarter: 2009Q4

REPORT INFORMATION
  Report Type: 
  Country: None (occurrence: None)
  Receive Date: 20091021
  Receipt Date: 20091014
  Transmission Date: 20100525
  Serious: Yes (Hospitalization)
  Sender: FDA-Public Use
  Company Number: FR-TEVA-212548ISR

PATIENT
  Age: 65 Year

DRUGS (4)
  1. IRINOTECAN HCL [Suspect]
  2. FLUOROURACIL [Suspect]
  3. FOLINIC ACID [Suspect]
  4. BEVACIZUMAB [Suspect]

REACTIONS (4)
  - COLITIS ISCHAEMIC [None]
  - GENERAL PHYSICAL HEALTH DETERIORATION [None]
  - MEGACOLON [None]
  - SEPTIC SHOCK [None]
